FAERS Safety Report 17622567 (Version 1)
Quarter: 2020Q2

REPORT INFORMATION
  Report Type: Spontaneous
  Country: DE (occurrence: DE)
  Receive Date: 20200403
  Receipt Date: 20200403
  Transmission Date: 20200713
  Serious: Yes (Other)
  Sender: FDA-Public Use
  Company Number: DE-BRACCO-2020DE01397

PATIENT
  Age: 53 Year
  Sex: Female
  Weight: 74 kg

DRUGS (2)
  1. PROHANCE [Suspect]
     Active Substance: GADOTERIDOL
     Dosage: UNK, SINGLE
  2. DOTAREM [Suspect]
     Active Substance: GADOTERATE MEGLUMINE
     Indication: MAGNETIC RESONANCE IMAGING ABDOMINAL
     Dosage: ADMINISTERED EIGHT TIMES FROM AUG-2013 TO JAN-2018

REACTIONS (43)
  - Contrast media toxicity [Unknown]
  - Monoplegia [Unknown]
  - Skin discomfort [Unknown]
  - Eyelid disorder [Unknown]
  - Dyspnoea [Unknown]
  - Injury [Unknown]
  - Raynaud^s phenomenon [Unknown]
  - Hot flush [Unknown]
  - Hyperhidrosis [Unknown]
  - Neck pain [Unknown]
  - Flank pain [Unknown]
  - Fall [Unknown]
  - White blood cell count increased [Unknown]
  - Feeling hot [Unknown]
  - Dermatitis [Unknown]
  - Ocular discomfort [Unknown]
  - Drooling [Unknown]
  - Red blood cell count increased [Unknown]
  - Apathy [Unknown]
  - Gait disturbance [Unknown]
  - Urinary tract infection [Unknown]
  - Haemangioma [Unknown]
  - Palpitations [Unknown]
  - Nephrogenic systemic fibrosis [Unknown]
  - Dizziness [Unknown]
  - Sleep disorder [Unknown]
  - Dyspepsia [Unknown]
  - Mental disorder [Unknown]
  - Exercise tolerance decreased [Unknown]
  - Skin hypertrophy [Unknown]
  - Limb discomfort [Unknown]
  - Urinary hesitation [Unknown]
  - Paraesthesia [Unknown]
  - Fatigue [Unknown]
  - Lymphadenopathy [Unknown]
  - Musculoskeletal stiffness [Unknown]
  - Coordination abnormal [Unknown]
  - Angiopathy [Unknown]
  - Tongue discomfort [Unknown]
  - Dysphagia [Unknown]
  - Rosacea [Unknown]
  - Perineal disorder [Unknown]
  - Dysaesthesia [Unknown]

NARRATIVE: CASE EVENT DATE: 20180319
